FAERS Safety Report 4606442-3 (Version None)
Quarter: 2005Q1

REPORT INFORMATION
  Report Type: 
  Country: None (occurrence: None)
  Receive Date: 20050311
  Receipt Date: 20050106
  Transmission Date: 20050727
  Serious: Yes (Life-Threatening, Hospitalization, Disabling)
  Sender: FDA-Public Use
  Company Number: US-MERCK-0501USA00526

PATIENT
  Age: 89 Year
  Sex: Female

DRUGS (1)
  1. VIOXX [Suspect]
     Indication: ARTHRITIS
     Route: 048
     Dates: start: 20030901, end: 20040901

REACTIONS (5)
  - BLINDNESS [None]
  - BLINDNESS UNILATERAL [None]
  - HEART RATE INCREASED [None]
  - OCULAR VASCULAR DISORDER [None]
  - RETINAL ISCHAEMIA [None]
